FAERS Safety Report 6086075-5 (Version None)
Quarter: 2009Q1

REPORT INFORMATION
  Report Type: 
  Country: None (occurrence: None)
  Receive Date: 20090220
  Receipt Date: 20090212
  Transmission Date: 20090719
  Serious: Yes (Hospitalization)
  Sender: FDA-Public Use
  Company Number: US-ABBOTT-06P-163-0322735-00

PATIENT
  Sex: Female
  Weight: 64.468 kg

DRUGS (6)
  1. HUMIRA [Suspect]
     Indication: CROHN'S DISEASE
     Route: 058
     Dates: start: 20050826
  2. PENTASA [Concomitant]
     Indication: CROHN'S DISEASE
     Dates: start: 20050508, end: 20060116
  3. MERCAPTOPURINE [Concomitant]
     Indication: CROHN'S DISEASE
     Dates: start: 19960101, end: 20050916
  4. MERCAPTOPURINE [Concomitant]
     Dates: start: 20050920, end: 20060919
  5. MERCAPTOPURINE [Concomitant]
     Dates: start: 20060920
  6. MIRALAX [Concomitant]
     Indication: CROHN'S DISEASE
     Dates: start: 20060113

REACTIONS (2)
  - ATELECTASIS [None]
  - CROHN'S DISEASE [None]
